FAERS Safety Report 4851204-5 (Version None)
Quarter: 2005Q4

REPORT INFORMATION
  Report Type: 
  Country: None (occurrence: None)
  Receive Date: 20051208
  Receipt Date: 20051129
  Transmission Date: 20060501
  Serious: Yes (Death)
  Sender: FDA-Public Use
  Company Number: MK200512-0013-1

PATIENT
  Age: 37 Year
  Sex: Female

DRUGS (4)
  1. ANAFRANIL CAP [Suspect]
     Indication: DEPRESSION
     Dosage: 100 MG, QHS, PO
     Route: 048
  2. CLOZAPINE [Suspect]
     Indication: SCHIZOAFFECTIVE DISORDER
     Dosage: 700 MG, QD, PO
     Route: 048
     Dates: start: 20000901, end: 20050601
  3. ZIPRASIDONE HYDROCHLORIDE [Concomitant]
  4. ESCITALOPRAM OXALATE [Concomitant]

REACTIONS (1)
  - INTESTINAL OBSTRUCTION [None]
